FAERS Safety Report 15260733 (Version 1)
Quarter: 2018Q3

REPORT INFORMATION
  Report Type: Spontaneous
  Country: DE (occurrence: DE)
  Receive Date: 20180809
  Receipt Date: 20180809
  Transmission Date: 20181010
  Serious: Yes (Other)
  Sender: FDA-Public Use
  Company Number: PHHY2018DE066088

PATIENT
  Sex: Male

DRUGS (4)
  1. VALSARTAN 1 A PHARMA [Suspect]
     Active Substance: VALSARTAN
     Indication: HYPERTENSIVE CRISIS
  2. VALSARTAN HEXAL [Suspect]
     Active Substance: VALSARTAN
     Indication: HYPERTENSIVE CRISIS
  3. VALSARTAN HEXAL [Suspect]
     Active Substance: VALSARTAN
     Indication: ESSENTIAL HYPERTENSION
     Dosage: 160 MG, UNK
     Route: 065
     Dates: start: 2013
  4. VALSARTAN 1 A PHARMA [Suspect]
     Active Substance: VALSARTAN
     Indication: ESSENTIAL HYPERTENSION
     Dosage: 160 MG, UNK
     Route: 065
     Dates: start: 2013

REACTIONS (3)
  - Blood pressure systolic increased [Recovered/Resolved]
  - Hypertensive crisis [Recovered/Resolved]
  - Blood pressure fluctuation [Recovered/Resolved]
